FAERS Safety Report 5264876-0 (Version None)
Quarter: 2007Q1

REPORT INFORMATION
  Report Type: 
  Country: None (occurrence: None)
  Receive Date: 20070314
  Receipt Date: 20070228
  Transmission Date: 20070707
  Serious: Yes (Hospitalization, Other)
  Sender: FDA-Public Use
  Company Number: US-ELI_LILLY_AND_COMPANY-US200703000544

PATIENT
  Age: 66 Year
  Sex: Female

DRUGS (1)
  1. FORTEO [Suspect]
     Indication: OSTEOPOROSIS
     Dates: start: 20031201, end: 20051201

REACTIONS (9)
  - AMNESIA [None]
  - CONTUSION [None]
  - DEPRESSION SUICIDAL [None]
  - FALL [None]
  - HEAD INJURY [None]
  - HERPES ZOSTER [None]
  - HYPERSOMNIA [None]
  - PARANOIA [None]
  - SKIN LACERATION [None]
